FAERS Safety Report 10240946 (Version 1)
Quarter: 2014Q2

REPORT INFORMATION
  Report Type: Spontaneous
  Country: US (occurrence: US)
  Receive Date: 20140617
  Receipt Date: 20140617
  Transmission Date: 20141212
  Serious: Yes (Hospitalization, Other)
  Sender: FDA-Public Use
  Company Number: US-ELI_LILLY_AND_COMPANY-US201406002322

PATIENT
  Sex: Male

DRUGS (3)
  1. HUMULIN NPH [Suspect]
     Indication: DIABETES MELLITUS
     Dosage: 200 U, EACH EVENING
     Route: 065
  2. GLYBURIDE [Concomitant]
     Indication: DIABETES MELLITUS
  3. HYDROCHLOROTHIAZIDE [Concomitant]

REACTIONS (7)
  - Mobility decreased [Unknown]
  - Bladder disorder [Unknown]
  - Hearing impaired [Unknown]
  - Obesity [Unknown]
  - Fatigue [Unknown]
  - Cellulitis [Unknown]
  - Cardiac failure congestive [Unknown]
